FAERS Safety Report 5795342-1 (Version None)
Quarter: 2008Q2

REPORT INFORMATION
  Report Type: 
  Country: None (occurrence: None)
  Receive Date: 20080630
  Receipt Date: 20080623
  Transmission Date: 20081010
  Serious: Yes (Other)
  Sender: FDA-Public Use
  Company Number: US-PFIZER INC-2008052716

PATIENT
  Sex: Male
  Weight: 98.181 kg

DRUGS (9)
  1. CELEBREX [Suspect]
     Indication: PAIN
  2. CELEBREX [Suspect]
     Indication: INFLAMMATION
  3. K-DUR [Concomitant]
  4. DYAZIDE [Concomitant]
  5. TAMSULOSIN HCL [Concomitant]
  6. TOPROL-XL [Concomitant]
  7. ASTELIN [Concomitant]
  8. FLUTICASONE PROPIONATE [Concomitant]
  9. STOOL SOFTENER [Concomitant]

REACTIONS (2)
  - FUNGAL INFECTION [None]
  - SINUS DISORDER [None]
